FAERS Safety Report 15547121 (Version 3)
Quarter: 2019Q3

REPORT INFORMATION
  Report Type: Spontaneous
  Country: BG (occurrence: BG)
  Receive Date: 20181024
  Receipt Date: 20190926
  Transmission Date: 20191004
  Serious: Yes (Hospitalization)
  Sender: FDA-Public Use
  Company Number: PHHY2018BG129289

PATIENT
  Age: 65 Year
  Sex: Female

DRUGS (2)
  1. AMLODIPINE [Concomitant]
     Active Substance: AMLODIPINE BESYLATE
     Indication: HYPERTENSION
     Dosage: UNK
     Route: 048
  2. METHOTREXATE. [Suspect]
     Active Substance: METHOTREXATE
     Indication: GOUT
     Dosage: 2.5 MG, QOD
     Route: 048
     Dates: start: 20160302, end: 201603

REACTIONS (22)
  - Pancytopenia [Recovered/Resolved]
  - Rash pruritic [Recovering/Resolving]
  - Pain [Unknown]
  - Bone marrow failure [Unknown]
  - Oral pain [Unknown]
  - Chest pain [Unknown]
  - Paraesthesia [Unknown]
  - Bowel movement irregularity [Unknown]
  - Oral disorder [Unknown]
  - Rash pustular [Recovering/Resolving]
  - Stomatitis [Recovering/Resolving]
  - Diarrhoea [Unknown]
  - Mouth ulceration [Unknown]
  - Blister [Unknown]
  - Eating disorder [Unknown]
  - Product use in unapproved indication [Unknown]
  - Renal impairment [Unknown]
  - Disseminated varicella zoster vaccine virus infection [Unknown]
  - Thrombocytopenia [Recovered/Resolved]
  - Idiosyncratic drug reaction [Unknown]
  - Pyrexia [Unknown]
  - Skin ulcer [Unknown]

NARRATIVE: CASE EVENT DATE: 201603
